FAERS Safety Report 8660592 (Version 2)
Quarter: 2012Q4

REPORT INFORMATION
  Report Type: 
  Country: AR (occurrence: AR)
  Receive Date: 20120711
  Receipt Date: 20120907
  Transmission Date: 20130627
  Serious: Yes (Death, Other)
  Sender: FDA-Public Use
  Company Number: AR-BRISTOL-MYERS SQUIBB COMPANY-16736340

PATIENT
  Age: 64 Year
  Sex: Female

DRUGS (7)
  1. YERVOY [Suspect]
     Indication: MALIGNANT MELANOMA
     Route: 042
     Dates: start: 20120613
  2. IBUPROFEN [Concomitant]
  3. EUCITON [Concomitant]
  4. OMEPRAZOLE [Concomitant]
  5. NOZINAN [Concomitant]
     Dosage: 1 Tabs
  6. TRAPAX [Concomitant]
     Dosage: 1 tabs
  7. CLONAZEPAM [Concomitant]
     Dosage: 2.5,T4 50 mcg

REACTIONS (3)
  - Malignant neoplasm progression [Fatal]
  - Hepatitis [Unknown]
  - Osteitis [Unknown]
